FAERS Safety Report 7279887-3 (Version None)
Quarter: 2011Q1

REPORT INFORMATION
  Report Type: 
  Country: None (occurrence: None)
  Receive Date: 20110208
  Receipt Date: 20101217
  Transmission Date: 20110831
  Serious: Yes (Hospitalization, Other)
  Sender: FDA-Public Use
  Company Number: US-BAYER-201028006NA

PATIENT
  Sex: Female
  Weight: 61.364 kg

DRUGS (3)
  1. ADVIL [Concomitant]
     Indication: PAIN
     Dates: start: 19980101, end: 20100101
  2. YASMIN [Suspect]
     Indication: PAIN
     Route: 048
     Dates: start: 20050901, end: 20080301
  3. TYLENOL-500 [Concomitant]
     Indication: PAIN
     Dates: start: 19980101, end: 20100101

REACTIONS (5)
  - CHOLECYSTITIS CHRONIC [None]
  - POST PROCEDURAL COMPLICATION [None]
  - PAIN [None]
  - BILIARY COLIC [None]
  - CHOLELITHIASIS [None]
